FAERS Safety Report 5009185-X (Version None)
Quarter: 2006Q2

REPORT INFORMATION
  Report Type: 
  Country: None (occurrence: None)
  Receive Date: 20060519
  Receipt Date: 20060427
  Transmission Date: 20061013
  Serious: Yes (Death)
  Sender: FDA-Public Use
  Company Number: 224432

PATIENT
  Age: 43 Year
  Sex: Male
  Weight: 74 kg

DRUGS (2)
  1. MABTHERA (RITUXIMAB ) CONC FOR  SOLUTION FOR INFUSION SOLN, 100MG [Suspect]
     Indication: BURKITT'S LYMPHOMA
     Dosage: 650 MG, INTRAVENOUS
     Route: 042
     Dates: start: 20060323
  2. MABTHERA (RITUXIMAB ) CONC FOR  SOLUTION FOR INFUSION SOLN, 100MG [Suspect]

REACTIONS (8)
  - BLOOD CULTURE POSITIVE [None]
  - CONDITION AGGRAVATED [None]
  - COUGH [None]
  - HYPOTENSION [None]
  - PSEUDOMONAL BACTERAEMIA [None]
  - SEPSIS [None]
  - TACHYCARDIA [None]
  - TACHYPNOEA [None]
